FAERS Safety Report 13957381 (Version 2)
Quarter: 2018Q1

REPORT INFORMATION
  Report Type: Report from Study
  Country: GB (occurrence: GB)
  Receive Date: 20170912
  Receipt Date: 20180123
  Transmission Date: 20180508
  Serious: Yes (Other)
  Sender: FDA-Public Use
  Company Number: GB-ROCHE-1745162

PATIENT
  Sex: Female

DRUGS (1)
  1. ROACTEMRA [Suspect]
     Active Substance: TOCILIZUMAB
     Indication: RHEUMATOID ARTHRITIS
     Route: 058
     Dates: start: 20160111

REACTIONS (4)
  - Lower respiratory tract infection [Unknown]
  - Upper respiratory tract infection [Unknown]
  - Alanine aminotransferase increased [Unknown]
  - Ear infection [Unknown]
